FAERS Safety Report 25396614 (Version 12)
Quarter: 2025Q4

REPORT INFORMATION
  Report Type: Report from Study
  Country: CO (occurrence: CO)
  Receive Date: 20250604
  Receipt Date: 20251017
  Transmission Date: 20260117
  Serious: Yes (Death, Hospitalization, Other)
  Sender: TAKEDA
  Company Number: CO-TAKEDA-2024TUS088107

PATIENT
  Age: 84 Year
  Sex: Male
  Weight: 80 kg

DRUGS (3)
  1. VEDOLIZUMAB [Suspect]
     Active Substance: VEDOLIZUMAB
     Indication: Colitis ulcerative
     Dosage: 300 MILLIGRAM
  2. VEDOLIZUMAB [Suspect]
     Active Substance: VEDOLIZUMAB
     Indication: Colitis ulcerative
     Dosage: 108 MILLIGRAM, Q2WEEKS
     Dates: start: 20250703, end: 20251007
  3. VEDOLIZUMAB [Suspect]
     Active Substance: VEDOLIZUMAB

REACTIONS (20)
  - Death [Fatal]
  - Metastases to lung [Unknown]
  - Cardiovascular disorder [Unknown]
  - Arrhythmia [Unknown]
  - Pulmonary cavitation [Unknown]
  - Metastases to liver [Unknown]
  - Metastases to kidney [Unknown]
  - Fluid retention [Recovered/Resolved]
  - Urinary retention [Recovered/Resolved]
  - Abdominal pain [Recovered/Resolved]
  - Urinary tract infection [Recovering/Resolving]
  - Vertigo [Recovered/Resolved]
  - Faeces soft [Unknown]
  - Diarrhoea [Unknown]
  - Frequent bowel movements [Unknown]
  - Poor venous access [Unknown]
  - Product dose omission issue [Unknown]
  - Dyspnoea [Recovered/Resolved]
  - Lymphadenopathy [Unknown]
  - Cough [Recovered/Resolved]

NARRATIVE: CASE EVENT DATE: 20240813
